FAERS Safety Report 14992226 (Version 1)
Quarter: 2018Q2

REPORT INFORMATION
  Report Type: Spontaneous
  Country: US (occurrence: US)
  Receive Date: 20180517
  Receipt Date: 20180517
  Transmission Date: 20180711
  Serious: No
  Sender: FDA-Public Use
  Company Number: None

PATIENT
  Age: 56 Year
  Sex: Male
  Weight: 121.79 kg

DRUGS (1)
  1. ELBASVIR/GRAZOPREVIR [Suspect]
     Active Substance: ELBASVIR\GRAZOPREVIR
     Indication: HEPATITIS C
     Dosage: 50/100 MG EVERY DAY, PO
     Route: 048
     Dates: start: 20161202, end: 20170113

REACTIONS (1)
  - Arthralgia [None]

NARRATIVE: CASE EVENT DATE: 20170106
